FAERS Safety Report 4778823-9 (Version None)
Quarter: 2005Q3

REPORT INFORMATION
  Report Type: 
  Country: None (occurrence: None)
  Receive Date: 20050923
  Receipt Date: 20050913
  Transmission Date: 20060218
  Serious: Yes (Hospitalization)
  Sender: FDA-Public Use
  Company Number: 2005127357

PATIENT
  Age: 75 Year
  Sex: Female

DRUGS (4)
  1. ACCUPRIL [Suspect]
     Indication: HYPERTENSION
     Dosage: 20 MG (20 MG, 1 IN 1 D), ORAL
     Route: 048
     Dates: start: 20031113
  2. HYDROCHLOROTHIAZIDE [Concomitant]
  3. ASPIRIN [Concomitant]
  4. FLUNARIZINE (FLUNARIZINE) [Concomitant]

REACTIONS (1)
  - DEEP VEIN THROMBOSIS [None]
